FAERS Safety Report 6134779-8 (Version None)
Quarter: 2009Q1

REPORT INFORMATION
  Report Type: 
  Country: None (occurrence: None)
  Receive Date: 20090327
  Receipt Date: 20090323
  Transmission Date: 20090719
  Serious: Yes (Other)
  Sender: FDA-Public Use
  Company Number: CA-WYE-H08689509

PATIENT
  Age: 3 Year
  Sex: Male

DRUGS (2)
  1. JUNIOR STRENGTH ADVIL [Suspect]
     Indication: NASOPHARYNGITIS
     Route: 048
     Dates: start: 20090321, end: 20090321
  2. JUNIOR STRENGTH ADVIL [Suspect]
     Dosage: UNKNOWN X 1
     Route: 048
     Dates: start: 20090322, end: 20090322

REACTIONS (2)
  - ACCIDENTAL DRUG INTAKE BY CHILD [None]
  - ACCIDENTAL OVERDOSE [None]
